FAERS Safety Report 23932787 (Version 1)
Quarter: 2024Q2

REPORT INFORMATION
  Report Type: Spontaneous
  Country: US (occurrence: None)
  Receive Date: 20240601
  Receipt Date: 20240601
  Transmission Date: 20240716
  Serious: Yes (Hospitalization)
  Sender: FDA-Public Use
  Company Number: None

PATIENT
  Age: 76 Year
  Sex: Male
  Weight: 99 kg

DRUGS (19)
  1. LEQVIO [Suspect]
     Active Substance: INCLISIRAN SODIUM
     Indication: Blood cholesterol increased
     Dates: start: 20231023
  2. Aspirin [Concomitant]
  3. EZETIMIBE [Concomitant]
     Active Substance: EZETIMIBE
  4. AMLODIPINE [Concomitant]
  5. CARVEDILOL [Concomitant]
  6. LOSARTAN [Concomitant]
  7. METFORMIN [Concomitant]
  8. PANTOPRAZOLE [Concomitant]
  9. Hydrocholorothiazide [Concomitant]
  10. Isosorbide monoR [Concomitant]
  11. LEVOTHYROXINE [Concomitant]
  12. NITROGLYCERINE [Concomitant]
  13. ROSUVASTATIN [Concomitant]
  14. PLAVIX [Concomitant]
     Active Substance: CLOPIDOGREL BISULFATE
  15. Calcium/Mag/Zinc/VitD3 [Concomitant]
  16. Elderberry/VitC [Concomitant]
  17. COENZYME Q10 [Concomitant]
     Active Substance: DIETARY SUPPLEMENT\UBIDECARENONE
  18. UNSPECIFIED INGREDIENT [Concomitant]
     Active Substance: UNSPECIFIED INGREDIENT
  19. Omega3-fish oil with EPA+BHA [Concomitant]

REACTIONS (2)
  - Peripheral artery thrombosis [None]
  - Arterial occlusive disease [None]

NARRATIVE: CASE EVENT DATE: 20231127
